FAERS Safety Report 18882097 (Version 4)
Quarter: 2022Q1

REPORT INFORMATION
  Report Type: Spontaneous
  Country: US (occurrence: US)
  Receive Date: 20210212
  Receipt Date: 20220321
  Transmission Date: 20220423
  Serious: Yes (Hospitalization, Other)
  Sender: FDA-Public Use
  Company Number: US-AMGEN-USASP2021019396

PATIENT
  Age: 79 Year
  Sex: Male

DRUGS (21)
  1. CARFILZOMIB [Suspect]
     Active Substance: CARFILZOMIB
     Indication: Plasma cell myeloma
     Dosage: (40 MG, 1  IN 1 DAY)
     Route: 042
     Dates: start: 20201022, end: 20201023
  2. CARFILZOMIB [Suspect]
     Active Substance: CARFILZOMIB
     Dosage: (50 MG, 1  IN 1 DAY)
     Route: 042
     Dates: start: 20201029, end: 20201030
  3. CARFILZOMIB [Suspect]
     Active Substance: CARFILZOMIB
     Dosage: (100 MG, 1  IN 1 DAY)
     Route: 042
     Dates: start: 20201112, end: 20201113
  4. DENOSUMAB [Suspect]
     Active Substance: DENOSUMAB
     Indication: Prophylaxis
     Dosage: 120 MILLIGRAM  (1 IN 1 M)
     Route: 058
  5. ACETAMINOPHEN [Concomitant]
     Active Substance: ACETAMINOPHEN
     Indication: Product used for unknown indication
     Dosage: UNK
     Route: 048
  6. ACYCLOVIR [Concomitant]
     Active Substance: ACYCLOVIR
     Indication: Antiviral prophylaxis
     Dosage: UNK
     Route: 048
  7. SODIUM CHLORIDE [Concomitant]
     Active Substance: SODIUM CHLORIDE
     Indication: Fluid replacement
     Dosage: 250 MILLIGRAM, AS NECESSARY
     Route: 042
     Dates: start: 20201029, end: 20201029
  8. SODIUM CHLORIDE [Concomitant]
     Active Substance: SODIUM CHLORIDE
     Indication: Supportive care
     Dosage: 2000 MILLIGRAM, QD
     Route: 042
     Dates: start: 20201121, end: 20201121
  9. SODIUM CHLORIDE [Concomitant]
     Active Substance: SODIUM CHLORIDE
     Dosage: 251.8 MILLILITER, AS NECESSARY
     Route: 042
     Dates: start: 20201029, end: 20201029
  10. SODIUM CHLORIDE [Concomitant]
     Active Substance: SODIUM CHLORIDE
     Dosage: 275 MILLIGRAM, AS NECESSARY, 0.9%
     Route: 042
     Dates: start: 20201029, end: 20201029
  11. ONDANSETRON [Concomitant]
     Active Substance: ONDANSETRON
     Indication: Prophylaxis of nausea and vomiting
     Dosage: 8 MILLIGRAM, QD
     Route: 042
     Dates: start: 20201022, end: 20201023
  12. ONDANSETRON [Concomitant]
     Active Substance: ONDANSETRON
     Dosage: 8 MILLIGRAM, QD
     Route: 042
     Dates: start: 20201029, end: 20201030
  13. ONDANSETRON [Concomitant]
     Active Substance: ONDANSETRON
     Dosage: 8 MILLIGRAM, QD
     Route: 042
     Dates: start: 20201112, end: 20201113
  14. POLYTRIM [Concomitant]
     Active Substance: POLYMYXIN B SULFATE\TRIMETHOPRIM SULFATE
     Indication: Conjunctivitis
     Dosage: UNK ,1 GTT (QID)
     Route: 047
     Dates: start: 20201121
  15. POTASSIUM CHLORIDE [Concomitant]
     Active Substance: POTASSIUM CHLORIDE
     Indication: Blood potassium decreased
     Dosage: 40 MILLIEQUIVALENT (20 MILLIEQUIVALENT 2 IN 1 DAY)
     Route: 048
     Dates: start: 20201022, end: 20201022
  16. DEXAMETHASONE [Concomitant]
     Active Substance: DEXAMETHASONE
     Dosage: 20 MILLIGRAM, QD
     Route: 065
     Dates: start: 20201022
  17. DEXAMETHASONE [Concomitant]
     Active Substance: DEXAMETHASONE
     Dosage: 20 MILLIGRAM, QD
     Route: 065
     Dates: start: 20201029
  18. DEXAMETHASONE [Concomitant]
     Active Substance: DEXAMETHASONE
     Dosage: 20 MILLIGRAM, QD
     Route: 065
     Dates: start: 20201112
  19. DEXAMETHASONE [Concomitant]
     Active Substance: DEXAMETHASONE
     Dosage: 20 MILLIGRAM, QD
     Route: 065
     Dates: start: 20201113
  20. CYCLOPHOSPHAMIDE [Concomitant]
     Active Substance: CYCLOPHOSPHAMIDE
     Dosage: 500 MILLIGRAM, IN NACL 0.9% 275 ML
     Route: 042
     Dates: start: 20201127, end: 20201130
  21. FLUDARABINE [Concomitant]
     Active Substance: FLUDARABINE PHOSPHATE
     Dosage: 45 MILLIGRAM
     Route: 042

REACTIONS (3)
  - Pneumonia bacterial [Recovered/Resolved with Sequelae]
  - Anaemia [Recovered/Resolved with Sequelae]
  - ECG signs of myocardial ischaemia [Unknown]

NARRATIVE: CASE EVENT DATE: 20201121
